FAERS Safety Report 23229682 (Version 1)
Quarter: 2023Q4

REPORT INFORMATION
  Report Type: Spontaneous
  Country: US (occurrence: None)
  Receive Date: 20231127
  Receipt Date: 20231127
  Transmission Date: 20240109
  Serious: No
  Sender: FDA-Public Use
  Company Number: US-ROCHE-3405637

PATIENT
  Age: 36 Year
  Sex: Female
  Weight: 49.94 kg

DRUGS (1)
  1. PULMOZYME [Suspect]
     Active Substance: DORNASE ALFA
     Indication: Cystic fibrosis lung
     Dosage: ONGOING :YES
     Route: 065

REACTIONS (2)
  - Fall [Unknown]
  - Product storage error [Unknown]

NARRATIVE: CASE EVENT DATE: 20230809
